FAERS Safety Report 18911574 (Version 7)
Quarter: 2022Q3

REPORT INFORMATION
  Report Type: Report from Study
  Country: BE (occurrence: BE)
  Receive Date: 20210218
  Receipt Date: 20220810
  Transmission Date: 20221026
  Serious: No
  Sender: FDA-Public Use
  Company Number: BE-AMGEN-BELSP2021013363

PATIENT
  Age: 65 Year
  Sex: Male

DRUGS (2)
  1. PEGFILGRASTIM [Suspect]
     Active Substance: PEGFILGRASTIM
     Indication: Prophylaxis
     Dosage: UNK
     Route: 065
  2. PEGFILGRASTIM [Suspect]
     Active Substance: PEGFILGRASTIM
     Dosage: UNK
     Route: 065

REACTIONS (1)
  - Wrong technique in product usage process [Unknown]

NARRATIVE: CASE EVENT DATE: 20210120
